FAERS Safety Report 9415679 (Version 1)
Quarter: 2013Q3

REPORT INFORMATION
  Report Type: Spontaneous
  Country: US (occurrence: US)
  Receive Date: 20130723
  Receipt Date: 20130723
  Transmission Date: 20140515
  Serious: Yes (Other)
  Sender: FDA-Public Use
  Company Number: US-ACTAVIS-2013-12821

PATIENT
  Age: 24 Year
  Sex: Female

DRUGS (3)
  1. CHLORHEXIDINE GLUCONATE [Suspect]
     Indication: INFECTION PROPHYLAXIS
     Dosage: UNK
     Route: 061
  2. LIDOCAINE HYDROCHLORIDE 1% WITH EPINEPHRINE (WATSON LABORATORIES) [Suspect]
     Indication: LOCAL ANAESTHESIA
     Dosage: 3 ML OF 1.5 % LIDOCAINE WITH EPINEPHRINE (1:200000; 5 MCG/ML)
     Route: 008
  3. SODIUM CHLORIDE [Suspect]
     Indication: EPIDURAL BLOOD PATCH
     Dosage: UNK
     Route: 065

REACTIONS (4)
  - Post lumbar puncture syndrome [Recovered/Resolved]
  - Back pain [Recovered/Resolved]
  - Anaesthetic complication [Unknown]
  - Maternal exposure during delivery [Unknown]
